FAERS Safety Report 5845506-3 (Version None)
Quarter: 2008Q3

REPORT INFORMATION
  Report Type: 
  Country: None (occurrence: None)
  Receive Date: 20080814
  Receipt Date: 20080804
  Transmission Date: 20090109
  Serious: Yes (Other)
  Sender: FDA-Public Use
  Company Number: DE-ROCHE-579697

PATIENT
  Sex: Male
  Weight: 82 kg

DRUGS (12)
  1. METHOXY POLYETHYLENE GLYCOL-EPOETIN BETA [Suspect]
     Route: 042
     Dates: start: 20080521, end: 20080616
  2. PIRACETAM [Concomitant]
     Route: 048
     Dates: start: 20070308
  3. PANTOPRAZOL [Concomitant]
     Indication: PROPHYLAXIS
     Route: 048
     Dates: start: 20070308
  4. ACETYLSALICYLIC ACID SRT [Concomitant]
     Indication: PLATELET AGGREGATION INCREASED
     Route: 048
     Dates: start: 20070308
  5. TELMISARTAN [Concomitant]
     Indication: ESSENTIAL HYPERTENSION
     Route: 048
     Dates: start: 20070308
  6. METOPROLOL SUCCINATE [Concomitant]
     Indication: HYPERTENSION
     Dosage: NOT GIVEN ON HD DAYS
     Route: 048
     Dates: start: 20070308
  7. FUROSEMIDE [Concomitant]
     Indication: HYPERTENSION
     Dosage: OTHER INDICATION: OEDEMAS
     Route: 048
     Dates: start: 20070308
  8. SODIUM HYDROGEN CARBONATE [Concomitant]
     Indication: METABOLIC ACIDOSIS
     Dosage: DOSAGE REGIMEN: 1 GRAM TWICE DAILY ON SATURDAYS AND SUNDAYS
     Route: 048
     Dates: start: 20070308
  9. SIMVASTATIN [Concomitant]
     Indication: HYPERCHOLESTEROLAEMIA
     Route: 048
     Dates: start: 20070308
  10. CALCIUM ACETATE [Concomitant]
     Indication: HYPERPHOSPHATAEMIA
     Route: 048
     Dates: start: 20070308
  11. ALFACALCIDOL [Concomitant]
     Indication: HYPERPARATHYROIDISM
     Route: 048
     Dates: start: 20070308
  12. GOSERELIN [Concomitant]
     Indication: PROSTATE CANCER
     Dates: start: 20070308

REACTIONS (1)
  - HOT FLUSH [None]
